FAERS Safety Report 23851326 (Version 1)
Quarter: 2024Q2

REPORT INFORMATION
  Report Type: Spontaneous
  Country: ES (occurrence: ES)
  Receive Date: 20240514
  Receipt Date: 20240514
  Transmission Date: 20240716
  Serious: Yes (Other)
  Sender: FDA-Public Use
  Company Number: None

PATIENT
  Age: 27 Year
  Sex: Female
  Weight: 63 kg

DRUGS (2)
  1. CLONAZEPAM [Suspect]
     Active Substance: CLONAZEPAM
     Indication: Anxiety
     Dosage: EVERY 8 HOURS; 60 TABLETS?DAILY DOSE: 3 DOSAGE FORM
     Route: 048
     Dates: start: 20240201
  2. SERTRALINE HYDROCHLORIDE [Suspect]
     Active Substance: SERTRALINE HYDROCHLORIDE
     Indication: Depression
     Dosage: 30 TABLETS?DAILY DOSE: 100 MILLIGRAM
     Route: 048
     Dates: start: 20231001

REACTIONS (4)
  - Impostor phenomenon [Not Recovered/Not Resolved]
  - Paranoia [Not Recovered/Not Resolved]
  - Delirium [Not Recovered/Not Resolved]
  - Suicidal ideation [Not Recovered/Not Resolved]

NARRATIVE: CASE EVENT DATE: 20240313
